FAERS Safety Report 13712713 (Version 3)
Quarter: 2017Q3

REPORT INFORMATION
  Report Type: Report from Study
  Country: US (occurrence: US)
  Receive Date: 20170703
  Receipt Date: 20170808
  Transmission Date: 20171127
  Serious: Yes (Other)
  Sender: FDA-Public Use
  Company Number: US-BAYER-2017-121643

PATIENT
  Age: 79 Year
  Sex: Male

DRUGS (3)
  1. NEXAVAR [Suspect]
     Active Substance: SORAFENIB
     Indication: IMMUNE THROMBOCYTOPENIC PURPURA
     Dosage: 200 MG, QOD
     Route: 048
     Dates: start: 20161010
  2. NEXAVAR [Suspect]
     Active Substance: SORAFENIB
     Indication: IMMUNE THROMBOCYTOPENIC PURPURA
     Dosage: 200 MG, QOD
     Route: 048
     Dates: end: 2017
  3. NEXAVAR [Suspect]
     Active Substance: SORAFENIB
     Indication: IMMUNE THROMBOCYTOPENIC PURPURA
     Dosage: 200 MG, QOD
     Route: 048
     Dates: start: 20081205

REACTIONS (6)
  - Stent placement [None]
  - Product use in unapproved indication [None]
  - Heart valve replacement [None]
  - Gout [None]
  - Off label use [None]
  - Metastases to kidney [None]

NARRATIVE: CASE EVENT DATE: 20170629
